FAERS Safety Report 5163319-5 (Version None)
Quarter: 2006Q4

REPORT INFORMATION
  Report Type: 
  Country: None (occurrence: None)
  Receive Date: 20061204
  Receipt Date: 20061120
  Transmission Date: 20070319
  Serious: Yes (Hospitalization)
  Sender: FDA-Public Use
  Company Number: JP-JNJFOC-20041201278

PATIENT
  Sex: Female
  Weight: 64.5 kg

DRUGS (12)
  1. REMICADE [Suspect]
     Route: 042
  2. REMICADE [Suspect]
     Route: 042
  3. REMICADE [Suspect]
     Indication: RHEUMATOID ARTHRITIS
     Dosage: FIRST DOSE
     Route: 042
  4. RHEUMATREX [Suspect]
     Indication: RHEUMATOID ARTHRITIS
     Route: 048
  5. OSTELUC [Suspect]
     Indication: RHEUMATOID ARTHRITIS
     Route: 048
  6. INFLUENZA VACCINE [Concomitant]
  7. SOLON [Concomitant]
     Route: 048
  8. EMPYNASE [Concomitant]
     Route: 048
  9. VITAMIN D3 [Concomitant]
     Route: 048
  10. CORONAMOLE [Concomitant]
     Route: 048
  11. ZYRTEC [Concomitant]
     Route: 048
  12. WARKMIN [Concomitant]

REACTIONS (1)
  - PNEUMOCYSTIS JIROVECI PNEUMONIA [None]
